FAERS Safety Report 5640620-X (Version None)
Quarter: 2008Q1

REPORT INFORMATION
  Report Type: 
  Country: None (occurrence: None)
  Receive Date: 20080227
  Receipt Date: 20080218
  Transmission Date: 20080703
  Serious: Yes (Other)
  Sender: FDA-Public Use
  Company Number: GB-AVENTIS-200811650GDDC

PATIENT
  Sex: Male

DRUGS (1)
  1. CLOMID [Suspect]

REACTIONS (3)
  - OFF LABEL USE [None]
  - OVERDOSE [None]
  - RENAL FAILURE ACUTE [None]
